FAERS Safety Report 5654273-8 (Version None)
Quarter: 2008Q1

REPORT INFORMATION
  Report Type: 
  Country: None (occurrence: None)
  Receive Date: 20080305
  Receipt Date: 20080221
  Transmission Date: 20080703
  Serious: Yes (Hospitalization)
  Sender: FDA-Public Use
  Company Number: 231798J08USA

PATIENT
  Age: 40 Year
  Sex: Female

DRUGS (6)
  1. REBIF [Suspect]
     Indication: MULTIPLE SCLEROSIS
     Dosage: 44 MCG, 3 IN 1 WEEKS, SUBCUTANEOUS
     Route: 058
     Dates: start: 20080110
  2. EFFEXOR [Concomitant]
  3. TRAZODONE HCL [Concomitant]
  4. IRON (IRON) [Concomitant]
  5. PROVIGIL [Concomitant]
  6. NAPROXEN [Concomitant]

REACTIONS (8)
  - BLINDNESS TRANSIENT [None]
  - BLINDNESS UNILATERAL [None]
  - COMPUTERISED TOMOGRAM ABNORMAL [None]
  - CONDITION AGGRAVATED [None]
  - CONVULSION [None]
  - ELECTROENCEPHALOGRAM ABNORMAL [None]
  - MULTIPLE SCLEROSIS [None]
  - OPTIC NEURITIS [None]
